FAERS Safety Report 16724430 (Version 3)
Quarter: 2019Q4

REPORT INFORMATION
  Report Type: Spontaneous
  Country: US (occurrence: US)
  Receive Date: 20190821
  Receipt Date: 20191004
  Transmission Date: 20200122
  Serious: Yes (Life-Threatening, Other)
  Sender: FDA-Public Use
  Company Number: US-PFIZER INC-2019356360

PATIENT
  Age: 65 Year
  Sex: Male
  Weight: 65.77 kg

DRUGS (11)
  1. NEURONTIN [Suspect]
     Active Substance: GABAPENTIN
     Indication: NEURITIS
     Dosage: 300 MG, 3X/DAY
     Route: 048
     Dates: start: 20190815, end: 20190819
  2. NEURONTIN [Suspect]
     Active Substance: GABAPENTIN
     Indication: NEURALGIA
  3. BUSPIRONE [Suspect]
     Active Substance: BUSPIRONE HYDROCHLORIDE
     Indication: ANXIETY
     Dosage: 10 MG, UNK
  4. FLUCONAZOLE. [Concomitant]
     Active Substance: FLUCONAZOLE
     Indication: ASTHMA
     Dosage: 100 MG, DAILY
  5. RISPERIDONE. [Concomitant]
     Active Substance: RISPERIDONE
     Indication: POST-TRAUMATIC STRESS DISORDER
     Dosage: 0.5 MG, DAILY
  6. XANAX [Concomitant]
     Active Substance: ALPRAZOLAM
     Indication: POST-TRAUMATIC STRESS DISORDER
     Dosage: 1 MG, DAILY
  7. NEURONTIN [Suspect]
     Active Substance: GABAPENTIN
     Indication: PAIN IN EXTREMITY
     Dosage: 300 MG, 1X/DAY
     Route: 048
     Dates: start: 20190809, end: 201908
  8. PREDNISONE. [Concomitant]
     Active Substance: PREDNISONE
     Indication: ASTHMA
     Dosage: 10 MG, DAILY
  9. NEURONTIN [Suspect]
     Active Substance: GABAPENTIN
     Indication: NERVE INJURY
     Dosage: 300 MG, 2X/DAY
     Route: 048
     Dates: start: 20190812, end: 201908
  10. ALPRAZOLAM. [Concomitant]
     Active Substance: ALPRAZOLAM
     Dosage: 1 MG, AS NEEDED(1MG DAILY PRN)
  11. XANAX [Concomitant]
     Active Substance: ALPRAZOLAM
     Dosage: 3 MG, DAILY

REACTIONS (19)
  - Pain [Recovered/Resolved]
  - Cognitive disorder [Unknown]
  - Off label use [Recovered/Resolved]
  - Nausea [Recovered/Resolved]
  - Dysgeusia [Unknown]
  - Agitation [Recovering/Resolving]
  - Gastric disorder [Recovering/Resolving]
  - Muscle spasms [Recovered/Resolved]
  - Weight decreased [Recovered/Resolved]
  - Dizziness [Unknown]
  - Headache [Unknown]
  - Mood swings [Unknown]
  - Depressed mood [Unknown]
  - Hypoaesthesia oral [Unknown]
  - Suicidal ideation [Recovered/Resolved]
  - Anxiety [Recovered/Resolved]
  - Memory impairment [Recovered/Resolved]
  - Insomnia [Unknown]
  - Drug ineffective for unapproved indication [Recovered/Resolved]

NARRATIVE: CASE EVENT DATE: 201908
